FAERS Safety Report 18487182 (Version 2)
Quarter: 2020Q4

REPORT INFORMATION
  Report Type: Spontaneous
  Country: CA (occurrence: CA)
  Receive Date: 20201110
  Receipt Date: 20201123
  Transmission Date: 20210114
  Serious: Yes (Other)
  Sender: FDA-Public Use
  Company Number: KR-GLAXOSMITHKLINE-KR2020GSK216676

PATIENT
  Age: 77 Year
  Sex: Male

DRUGS (1)
  1. ACITRETIN. [Suspect]
     Active Substance: ACITRETIN
     Indication: CUTANEOUS T-CELL LYMPHOMA
     Dosage: UNK (25 TO 50 MG DAILY)
     Route: 048

REACTIONS (15)
  - Diffuse idiopathic skeletal hyperostosis [Recovering/Resolving]
  - Arthralgia [Recovering/Resolving]
  - Joint range of motion decreased [Recovering/Resolving]
  - Enthesophyte [Unknown]
  - Joint stiffness [Recovering/Resolving]
  - Hyperreflexia [Unknown]
  - Inflammation [Unknown]
  - Spinal ligament ossification [Unknown]
  - Spinal pain [Recovering/Resolving]
  - Off label use [Unknown]
  - Gait disturbance [Recovering/Resolving]
  - Impaired quality of life [Recovering/Resolving]
  - Pain in extremity [Recovering/Resolving]
  - Back pain [Recovering/Resolving]
  - Enthesopathy [Unknown]
